FAERS Safety Report 11791819 (Version 2)
Quarter: 2016Q2

REPORT INFORMATION
  Report Type: Spontaneous
  Country: JP (occurrence: JP)
  Receive Date: 20151201
  Receipt Date: 20160624
  Transmission Date: 20160815
  Serious: Yes (Other)
  Sender: FDA-Public Use
  Company Number: JP-SA-2015SA190533

PATIENT
  Age: 66 Year
  Sex: Male

DRUGS (6)
  1. 5-FU [Concomitant]
     Active Substance: FLUOROURACIL
     Dosage: IMFUSION
  2. CALCIUM LEVOFOLINATE [Concomitant]
     Active Substance: LEVOLEUCOVORIN CALCIUM
  3. 5-FU [Concomitant]
     Active Substance: FLUOROURACIL
     Dosage: BOLUS
  4. ELPLAT [Suspect]
     Active Substance: OXALIPLATIN
     Indication: GASTRIC CANCER
     Dosage: I.V. INFUSION SOLUTION INJECTION
     Route: 041
  5. ELPLAT [Suspect]
     Active Substance: OXALIPLATIN
     Indication: GASTRIC CANCER
     Dosage: I.V. INFUSION SOLUTION INJECTION
     Route: 041
  6. METHYLPREDNISOLONE SODIUM SUCCINATE. [Concomitant]
     Active Substance: METHYLPREDNISOLONE SODIUM SUCCINATE

REACTIONS (3)
  - Kounis syndrome [Recovering/Resolving]
  - Catheter site pruritus [Unknown]
  - Anaphylactic shock [Recovering/Resolving]
